FAERS Safety Report 11277409 (Version 4)
Quarter: 2015Q3

REPORT INFORMATION
  Report Type: Spontaneous
  Country: JP (occurrence: JP)
  Receive Date: 20150716
  Receipt Date: 20150818
  Transmission Date: 20151125
  Serious: Yes (Death, Hospitalization)
  Sender: FDA-Public Use
  Company Number: JP-PFIZER INC-2015232048

PATIENT
  Age: 98 Year
  Sex: Female
  Weight: 41 kg

DRUGS (3)
  1. LYRICA [Suspect]
     Active Substance: PREGABALIN
     Indication: POST HERPETIC NEURALGIA
     Dosage: 75 MG, 2X/DAY (IN THE MORNING AND THE EVENING)
     Route: 048
     Dates: start: 20150702, end: 20150703
  2. ACICLOVIR [Concomitant]
     Active Substance: ACYCLOVIR
     Indication: HERPES ZOSTER
     Dosage: 800 MG, 3X/DAY
     Route: 048
     Dates: start: 20150701, end: 20150703
  3. IBUPROFEN. [Concomitant]
     Active Substance: IBUPROFEN
     Indication: HERPES ZOSTER
     Dosage: UNK, 3X/DAY
     Route: 048
     Dates: start: 20150701, end: 20150702

REACTIONS (3)
  - Depressed level of consciousness [Fatal]
  - Insomnia [Fatal]
  - Somnolence [Unknown]

NARRATIVE: CASE EVENT DATE: 20150702
